FAERS Safety Report 8878881 (Version 1)
Quarter: 2012Q4

REPORT INFORMATION
  Report Type: 
  Country: DE (occurrence: DE)
  Receive Date: 20121026
  Receipt Date: 20121026
  Transmission Date: 20130627
  Serious: Yes (Hospitalization, Other)
  Sender: FDA-Public Use
  Company Number: DE-SANOFI-AVENTIS-2012SA078032

PATIENT
  Age: 60 Year
  Sex: Male
  Weight: 75 kg

DRUGS (1)
  1. ARAVA [Suspect]
     Indication: ARTHRITIS RHEUMATOID
     Dosage: daily dose: 20 Mg millgram(s) every Days
     Route: 048
     Dates: start: 200908, end: 20120914

REACTIONS (7)
  - Hepatitis acute [Recovering/Resolving]
  - Hepatic enzyme increased [Recovering/Resolving]
  - Ocular icterus [Unknown]
  - Diarrhoea [Unknown]
  - Cough [Unknown]
  - Rash [Unknown]
  - Asthenia [Unknown]
